FAERS Safety Report 4584067-6 (Version None)
Quarter: 2005Q1

REPORT INFORMATION
  Report Type: 
  Country: None (occurrence: None)
  Receive Date: 20050125
  Receipt Date: 20041029
  Transmission Date: 20050727
  Serious: No
  Sender: FDA-Public Use
  Company Number: USA041182731

PATIENT
  Age: 70 Year
  Sex: Female
  Weight: 77 kg

DRUGS (7)
  1. FORTEO [Suspect]
     Indication: OSTEOPOROSIS
     Dosage: 20 UG/1 DAY
     Dates: start: 20040817, end: 20041029
  2. TOPROL-XL [Concomitant]
  3. ZESTRIL [Concomitant]
  4. K-DUR 10 [Concomitant]
  5. SYNTHROID [Concomitant]
  6. NEURONTIN (GABAPENTIN PFIZER) [Concomitant]
  7. LASIX [Concomitant]

REACTIONS (4)
  - BONE PAIN [None]
  - MUSCLE STRAIN [None]
  - PAIN [None]
  - SPINAL FRACTURE [None]
